FAERS Safety Report 19212286 (Version 2)
Quarter: 2021Q2

REPORT INFORMATION
  Report Type: Spontaneous
  Country: US (occurrence: US)
  Receive Date: 20210504
  Receipt Date: 20210510
  Transmission Date: 20210717
  Serious: Yes (Other)
  Sender: FDA-Public Use
  Company Number: US-UNITED THERAPEUTICS-UNT-2021-007862

PATIENT
  Age: 31 Year
  Sex: Female
  Weight: 53.97 kg

DRUGS (4)
  1. ADCIRCA [Suspect]
     Active Substance: TADALAFIL
     Indication: PULMONARY ARTERIAL HYPERTENSION
     Dosage: UNK
     Route: 065
  2. LETAIRIS [Suspect]
     Active Substance: AMBRISENTAN
     Indication: PRODUCT USED FOR UNKNOWN INDICATION
     Dosage: UNK
     Route: 065
  3. REMODULIN [Suspect]
     Active Substance: TREPROSTINIL
     Dosage: 0.040 ?G/KG, CONTINUING
     Route: 058
  4. REMODULIN [Suspect]
     Active Substance: TREPROSTINIL
     Indication: PULMONARY ARTERIAL HYPERTENSION
     Dosage: UNK, CONTINUING
     Route: 058
     Dates: start: 20201030

REACTIONS (5)
  - Device dislocation [Unknown]
  - Dizziness [Unknown]
  - Migraine [Not Recovered/Not Resolved]
  - Hypersensitivity [Unknown]
  - Blood pressure decreased [Unknown]

NARRATIVE: CASE EVENT DATE: 20210426
